FAERS Safety Report 4622303-8 (Version None)
Quarter: 2005Q1

REPORT INFORMATION
  Report Type: 
  Country: None (occurrence: None)
  Receive Date: 20050324
  Receipt Date: 20050324
  Transmission Date: 20050727
  Serious: No
  Sender: FDA-Public Use
  Company Number: None

PATIENT
  Age: 46 Year
  Sex: Female
  Weight: 65.7716 kg

DRUGS (1)
  1. LEVOTHYROXINE [Suspect]
     Indication: HYPOTHYROIDISM
     Dosage: 0.112 MG PO QD
     Route: 048

REACTIONS (6)
  - BLOOD THYROID STIMULATING HORMONE INCREASED [None]
  - FATIGUE [None]
  - FEELING COLD [None]
  - LETHARGY [None]
  - PHARMACEUTICAL PRODUCT COMPLAINT [None]
  - WEIGHT INCREASED [None]
